FAERS Safety Report 11811081 (Version 1)
Quarter: 2015Q4

REPORT INFORMATION
  Report Type: Spontaneous
  Country: US (occurrence: None)
  Receive Date: 20151207
  Receipt Date: 20151207
  Transmission Date: 20160305
  Serious: No
  Sender: FDA-Public Use
  Company Number: None

PATIENT
  Age: 68 Year
  Sex: Male

DRUGS (1)
  1. FENTANYL. [Suspect]
     Active Substance: FENTANYL
     Indication: PAIN
     Dates: start: 20150624, end: 20151104

REACTIONS (4)
  - Skin disorder [None]
  - Mental status changes [None]
  - Urinary tract infection [None]
  - Somnolence [None]

NARRATIVE: CASE EVENT DATE: 20151104
